FAERS Safety Report 20581952 (Version 1)
Quarter: 2022Q1

REPORT INFORMATION
  Report Type: Spontaneous
  Country: US (occurrence: None)
  Receive Date: 20220310
  Receipt Date: 20220310
  Transmission Date: 20220423
  Serious: Yes (unspecified)
  Sender: FDA-Public Use
  Company Number: None

PATIENT
  Age: 83 Year
  Sex: Male
  Weight: 91.63 kg

DRUGS (1)
  1. APIXABAN [Suspect]
     Active Substance: APIXABAN
     Indication: Atrial fibrillation
     Dosage: FREQUENCY : TWICE A DAY;?
     Route: 048
     Dates: start: 20190806, end: 20200215

REACTIONS (6)
  - Haematuria [None]
  - Dizziness postural [None]
  - Culture urine positive [None]
  - Blood lactic acid increased [None]
  - Haemorrhage [None]
  - Drug interaction [None]

NARRATIVE: CASE EVENT DATE: 20191016
